FAERS Safety Report 19502512 (Version 1)
Quarter: 2021Q3

REPORT INFORMATION
  Report Type: Spontaneous
  Country: DE (occurrence: DE)
  Receive Date: 20210707
  Receipt Date: 20210707
  Transmission Date: 20211014
  Serious: Yes (Hospitalization)
  Sender: FDA-Public Use
  Company Number: DE-TEVA-2021-DE-1929849

PATIENT
  Age: 73 Year
  Sex: Female

DRUGS (5)
  1. PANTOPRAZOL [Concomitant]
     Active Substance: PANTOPRAZOLE SODIUM
     Dosage: 40 MILLIGRAM DAILY; 1?0?0?0,
     Route: 048
  2. NUSTENDI (EZETIMIB UND BEMPEDOINSAURE) [Concomitant]
     Dosage: 1 DOSAGE FORMS DAILY; 10 | 180 MG
     Route: 048
  3. CLOPIDOGREL [Suspect]
     Active Substance: CLOPIDOGREL BISULFATE
     Dosage: 75 MILLIGRAM DAILY; 1?0?0?0
     Route: 048
  4. APIXABAN [Suspect]
     Active Substance: APIXABAN
     Dosage: 10 MILLIGRAM DAILY;  1?0?1?0
     Route: 048
  5. CANDESARTAN. [Concomitant]
     Active Substance: CANDESARTAN
     Dosage: 16 MILLIGRAM DAILY; 1?0?0?0
     Route: 048

REACTIONS (4)
  - Swelling [Recovering/Resolving]
  - Hypotension [Recovering/Resolving]
  - Vascular pseudoaneurysm [Recovering/Resolving]
  - Haematoma [Recovering/Resolving]
